FAERS Safety Report 17723490 (Version 1)
Quarter: 2020Q2

REPORT INFORMATION
  Report Type: Spontaneous
  Country: US (occurrence: US)
  Receive Date: 20200429
  Receipt Date: 20200429
  Transmission Date: 20200714
  Serious: Yes (Hospitalization)
  Sender: FDA-Public Use
  Company Number: None

PATIENT
  Sex: Female
  Weight: 59.9 kg

DRUGS (8)
  1. METHOTREXATE. [Suspect]
     Active Substance: METHOTREXATE
  2. MERCAPTOPURINE. [Concomitant]
     Active Substance: MERCAPTOPURINE
  3. DEXAMETHASONE. [Suspect]
     Active Substance: DEXAMETHASONE
  4. CYCLOPHOSPHAMIDE. [Suspect]
     Active Substance: CYCLOPHOSPHAMIDE
  5. METHOTREXATE. [Suspect]
     Active Substance: METHOTREXATE
  6. DAUNORUBICIN [Suspect]
     Active Substance: DAUNORUBICIN
  7. VINCRISTINE SULFATE. [Suspect]
     Active Substance: VINCRISTINE SULFATE
  8. CYTARABINE. [Suspect]
     Active Substance: CYTARABINE

REACTIONS (6)
  - Pancytopenia [None]
  - Atrial fibrillation [None]
  - Febrile neutropenia [None]
  - SARS-CoV-2 test negative [None]
  - Fatigue [None]
  - Anaemia [None]

NARRATIVE: CASE EVENT DATE: 20200425
